FAERS Safety Report 21069114 (Version 2)
Quarter: 2024Q3

REPORT INFORMATION
  Report Type: Spontaneous
  Country: US (occurrence: US)
  Receive Date: 20220712
  Receipt Date: 20240722
  Transmission Date: 20241017
  Serious: Yes (Hospitalization, Other)
  Sender: ASTELLAS
  Company Number: US-ASTELLAS-2021US047131

PATIENT
  Age: 53 Year
  Sex: Female

DRUGS (13)
  1. MYRBETRIQ [Suspect]
     Active Substance: MIRABEGRON
     Indication: Bladder spasm
     Dosage: UNK, UNKNOWN FREQ.
     Route: 048
     Dates: end: 202110
  2. MYRBETRIQ [Suspect]
     Active Substance: MIRABEGRON
     Indication: Urinary incontinence
  3. HUMIRA [Suspect]
     Active Substance: ADALIMUMAB
     Indication: Rheumatoid arthritis
     Dosage: UNK UNK, UNKNOWN FREQ. (SOLUTION FOR INJECTION IN PRE-FILLED PEN, CITRATE FREE)
     Route: 058
  4. HUMIRA [Suspect]
     Active Substance: ADALIMUMAB
     Indication: Ankylosing spondylitis
     Dosage: UNK UNK, UNKNOWN FREQ. (SOLUTION FOR INJECTION IN PRE-FILLED PEN, CITRATE FREE)
     Route: 058
  5. HUMIRA [Suspect]
     Active Substance: ADALIMUMAB
     Indication: Product used for unknown indication
     Dosage: 40 MG, EVERY 2 WEEKS (40MG/0.4ML, 40MG SOLUTION FOR INJECTION IN PRE-FILLED SYRINGE)
     Route: 058
     Dates: start: 2020, end: 202110
  6. HUMIRA [Suspect]
     Active Substance: ADALIMUMAB
     Dosage: 40 MG, EVERY 2 WEEKS (40MG/0.4ML, 40MG SOLUTION FOR INJECTION IN PRE-FILLED SYRINGE)
     Route: 058
     Dates: start: 202111
  7. TOZINAMERAN [Concomitant]
     Active Substance: TOZINAMERAN
     Indication: COVID-19 immunisation
     Dosage: FIRST DOSE, UNKNOWN FREQ.
     Route: 030
     Dates: start: 20210505, end: 20210505
  8. TOZINAMERAN [Concomitant]
     Active Substance: TOZINAMERAN
     Dosage: SECOND DOSE, UNKNOWN FREQ.
     Route: 030
     Dates: start: 20210703, end: 20210703
  9. ROBAXIN [Concomitant]
     Active Substance: METHOCARBAMOL
     Indication: Spondylitis
     Dosage: UNK UNK, UNKNOWN FREQ.
     Route: 065
  10. ROBAXIN [Concomitant]
     Active Substance: METHOCARBAMOL
     Indication: Rheumatoid arthritis
  11. ROBAXIN [Concomitant]
     Active Substance: METHOCARBAMOL
     Indication: Ankylosing spondylitis
  12. ROBAXIN [Concomitant]
     Active Substance: METHOCARBAMOL
     Indication: Arthropathy
  13. SERTRALINE [Concomitant]
     Active Substance: SERTRALINE HYDROCHLORIDE
     Indication: Pain
     Dosage: UNK UNK, UNKNOWN FREQ.
     Route: 065

REACTIONS (3)
  - Kidney infection [Recovered/Resolved]
  - Pain [Unknown]
  - Blood potassium decreased [Recovered/Resolved]

NARRATIVE: CASE EVENT DATE: 20211001
